FAERS Safety Report 8816852 (Version 1)
Quarter: 2012Q4

REPORT INFORMATION
  Report Type: Spontaneous
  Country: US (occurrence: None)
  Receive Date: 20121002
  Receipt Date: 20121002
  Transmission Date: 20130627
  Serious: No
  Sender: FDA-Public Use
  Company Number: None

PATIENT
  Age: 45 Year
  Sex: Male
  Weight: 120.8 kg

DRUGS (1)
  1. LORAZEPAM [Suspect]
     Indication: AGITATION
     Route: 042
     Dates: start: 20120927, end: 20120927

REACTIONS (2)
  - Agitation [None]
  - Paradoxical drug reaction [None]
